FAERS Safety Report 8766409 (Version 1)
Quarter: 2012Q4

REPORT INFORMATION
  Report Type: 
  Country: NL (occurrence: NL)
  Receive Date: 20120904
  Receipt Date: 20120904
  Transmission Date: 20130627
  Serious: Yes (Death)
  Sender: FDA-Public Use
  Company Number: PHHY2012NL076150

PATIENT
  Age: 85 Year
  Sex: Male

DRUGS (3)
  1. ZOMETA [Suspect]
     Indication: PROSTATE CANCER METASTATIC
     Dosage: 4mg/100ml 1 x 21 days
     Dates: start: 20110201
  2. ZOMETA [Suspect]
     Dosage: 4mg/100ml 1 x 21 days
     Dates: start: 20120806
  3. ZOMETA [Suspect]
     Dosage: 4mg/100ml 1 x 21 days
     Dates: start: 20120826

REACTIONS (1)
  - Death [Fatal]
